FAERS Safety Report 10654423 (Version 1)
Quarter: 2014Q4

REPORT INFORMATION
  Report Type: Spontaneous
  Country: CH (occurrence: None)
  Receive Date: 20141212
  Receipt Date: 20141212
  Transmission Date: 20150529
  Serious: Yes (Other)
  Sender: FDA-Public Use
  Company Number: 20140789

PATIENT
  Age: 51 Year
  Sex: Female

DRUGS (4)
  1. KALEORID (POTASSIUM CHLORIDE) [Concomitant]
     Active Substance: POTASSIUM CHLORIDE
  2. PENTASA [Concomitant]
     Active Substance: MESALAMINE
  3. FERINJECT [Suspect]
     Active Substance: FERRIC CARBOXYMALTOSE
     Indication: IRON DEFICIENCY ANAEMIA
     Dosage: 1000 MG, 1 IN 1 TOTAL
     Route: 041
     Dates: start: 20141031, end: 20141031
  4. CORTANCYL (PREDNISONE) [Concomitant]
     Active Substance: PREDNISONE

REACTIONS (8)
  - Dry throat [None]
  - Vomiting [None]
  - Loss of consciousness [None]
  - Back pain [None]
  - Abdominal pain [None]
  - Malaise [None]
  - Pruritus [None]
  - Diarrhoea [None]

NARRATIVE: CASE EVENT DATE: 20141031
